FAERS Safety Report 4913590-7 (Version None)
Quarter: 2006Q1

REPORT INFORMATION
  Report Type: 
  Country: None (occurrence: None)
  Receive Date: 20060216
  Receipt Date: 20060210
  Transmission Date: 20060701
  Serious: Yes (Other)
  Sender: FDA-Public Use
  Company Number: JP-BOEHRINGER INGELHEIM PHARMACEUTICALS, INC.-2006-BP-01663YA

PATIENT
  Age: 76 Year
  Sex: Male

DRUGS (2)
  1. HARNAL [Suspect]
     Indication: BENIGN PROSTATIC HYPERPLASIA
     Route: 048
     Dates: start: 20060121, end: 20060209
  2. TANATRIL [Concomitant]
     Route: 048
     Dates: start: 20031213

REACTIONS (1)
  - DEMENTIA [None]
